FAERS Safety Report 4446578-3 (Version None)
Quarter: 2004Q3

REPORT INFORMATION
  Report Type: 
  Country: None (occurrence: None)
  Receive Date: 20040908
  Receipt Date: 20040820
  Transmission Date: 20050211
  Serious: Yes (Other)
  Sender: FDA-Public Use
  Company Number: 2004-06551

PATIENT
  Age: 52 Year
  Sex: Male
  Weight: 67.4 kg

DRUGS (12)
  1. TENOFOVIR DF (TENOFOVIR DISOPROXIL FUMARATE) [Suspect]
     Indication: HIV INFECTION
     Dosage: 300 MG, ONCE  A DAY, ORAL
     Route: 048
     Dates: start: 20030108, end: 20040108
  2. DDI EC (DIDANOSINE) [Suspect]
     Indication: HIV INFECTION
     Dosage: 400 MG, ONCE A DAY, ORAL
     Route: 048
     Dates: start: 19980226, end: 20040108
  3. D4T (STAVUDINE) [Suspect]
     Indication: HIV INFECTION
     Dosage: 40 MG, TWICE A DAY
     Dates: start: 19980226, end: 20040108
  4. ATAZANAVIR (ATAZANAVIR) [Concomitant]
  5. RITONAVIR [Concomitant]
  6. PERINDOPRIL (PERINDOPRIL) [Concomitant]
  7. HYDROCHLOROTHIAZIDE [Concomitant]
  8. METOPROLOL TARTRATE [Concomitant]
  9. TRAZODONE HCL [Concomitant]
  10. PENTAMIDINE (PENTAMIDINE) [Concomitant]
  11. MEGACE [Concomitant]
  12. VENTOLIN [Concomitant]

REACTIONS (13)
  - ALANINE AMINOTRANSFERASE INCREASED [None]
  - ASPARTATE AMINOTRANSFERASE INCREASED [None]
  - BLOOD ALKALINE PHOSPHATASE INCREASED [None]
  - BLOOD BILIRUBIN INCREASED [None]
  - BLOOD LACTATE DEHYDROGENASE INCREASED [None]
  - DIARRHOEA [None]
  - GAMMA-GLUTAMYLTRANSFERASE INCREASED [None]
  - GENERAL PHYSICAL HEALTH DETERIORATION [None]
  - HEPATIC FUNCTION ABNORMAL [None]
  - HYPERBILIRUBINAEMIA [None]
  - LACTIC ACIDOSIS [None]
  - LIPASE INCREASED [None]
  - WEIGHT INCREASED [None]
